FAERS Safety Report 12530103 (Version 1)
Quarter: 2016Q3

REPORT INFORMATION
  Report Type: Report from Study
  Country: IL (occurrence: IL)
  Receive Date: 20160706
  Receipt Date: 20160706
  Transmission Date: 20161109
  Serious: Yes (Other)
  Sender: FDA-Public Use
  Company Number: PHHY2015IL008064

PATIENT
  Age: 79 Year
  Sex: Male
  Weight: 93.4 kg

DRUGS (4)
  1. FUSID [Concomitant]
     Active Substance: FUROSEMIDE
     Dosage: 0.5 DF, UNK (HALF PILL)
     Route: 065
  2. TASIGNA [Suspect]
     Active Substance: NILOTINIB
     Indication: CHRONIC MYELOID LEUKAEMIA
     Dosage: 200 MG, BID
     Route: 048
     Dates: start: 20141008
  3. FUSID [Concomitant]
     Active Substance: FUROSEMIDE
     Indication: RENAL FAILURE
     Dosage: 1 DF, UNK (1 PILL)
     Route: 065
  4. HUMALOG MIX [Concomitant]
     Active Substance: INSULIN LISPRO
     Indication: TYPE 2 DIABETES MELLITUS
     Route: 065

REACTIONS (6)
  - Dyspnoea [Recovering/Resolving]
  - Cough [Recovered/Resolved]
  - Pneumonia [Unknown]
  - Asthenia [Recovering/Resolving]
  - Allergic cough [Recovered/Resolved]
  - Rhinitis allergic [Recovered/Resolved]

NARRATIVE: CASE EVENT DATE: 20150118
